FAERS Safety Report 14516544 (Version 1)
Quarter: 2018Q1

REPORT INFORMATION
  Report Type: Report from Study
  Country: None (occurrence: US)
  Receive Date: 20180212
  Receipt Date: 20180212
  Transmission Date: 20180509
  Serious: Yes (Hospitalization, Other)
  Sender: FDA-Public Use
  Company Number: US-ABBVIE-18K-163-2224653-00

PATIENT
  Sex: Female
  Weight: 81.27 kg

DRUGS (2)
  1. HUMIRA [Suspect]
     Active Substance: ADALIMUMAB
     Indication: RHEUMATOID ARTHRITIS
     Route: 058
     Dates: start: 2016, end: 201801
  2. ATENOLOL. [Suspect]
     Active Substance: ATENOLOL
     Indication: MIGRAINE
     Route: 065
     Dates: end: 2017

REACTIONS (15)
  - Diarrhoea [Not Recovered/Not Resolved]
  - Foot fracture [Recovered/Resolved]
  - Fall [Recovered/Resolved]
  - Loss of consciousness [Recovered/Resolved]
  - Peripheral swelling [Not Recovered/Not Resolved]
  - Body height decreased [Recovered/Resolved]
  - Drug ineffective [Unknown]
  - Arthralgia [Unknown]
  - Tendon rupture [Not Recovered/Not Resolved]
  - Pain [Not Recovered/Not Resolved]
  - Dizziness [Recovered/Resolved]
  - Morton^s neuralgia [Unknown]
  - Hypotension [Not Recovered/Not Resolved]
  - Weight decreased [Not Recovered/Not Resolved]
  - Ligament injury [Not Recovered/Not Resolved]

NARRATIVE: CASE EVENT DATE: 2016
